FAERS Safety Report 6037465-8 (Version None)
Quarter: 2009Q1

REPORT INFORMATION
  Report Type: 
  Country: None (occurrence: None)
  Receive Date: 20090114
  Receipt Date: 20090109
  Transmission Date: 20090719
  Serious: Yes (Other)
  Sender: FDA-Public Use
  Company Number: US-JNJCH-2009000791

PATIENT
  Age: 38 Year
  Sex: Female
  Weight: 56.2 kg

DRUGS (1)
  1. COOL MINT LISTERINE [Suspect]
     Indication: INTENTIONAL DRUG MISUSE
     Dosage: TEXT:ABOUT 8 OZ. EVERYDAY
     Route: 048

REACTIONS (4)
  - DEPENDENCE [None]
  - INCORRECT ROUTE OF DRUG ADMINISTRATION [None]
  - INTENTIONAL DRUG MISUSE [None]
  - OVARIAN CANCER [None]
